FAERS Safety Report 9379661 (Version 1)
Quarter: 2013Q2

REPORT INFORMATION
  Report Type: Spontaneous
  Country: FR (occurrence: None)
  Receive Date: 20130627
  Receipt Date: 20130627
  Transmission Date: 20140414
  Serious: Yes (Hospitalization)
  Sender: FDA-Public Use
  Company Number: 1764663

PATIENT
  Age: 76 Year
  Sex: Female

DRUGS (5)
  1. CARBOPLATIN [Suspect]
     Indication: CHEMOTHERAPY
     Dosage: 17:50-17:55
     Route: 042
     Dates: start: 20130311, end: 20130311
  2. PACLITAXEL [Concomitant]
  3. AZANTAC [Concomitant]
  4. POLARAMINE [Concomitant]
  5. DEXAMETHASONE [Concomitant]

REACTIONS (4)
  - Generalised erythema [None]
  - Face oedema [None]
  - Pruritus [None]
  - Hypersensitivity [None]
